FAERS Safety Report 11528340 (Version 2)
Quarter: 2015Q4

REPORT INFORMATION
  Report Type: Spontaneous
  Country: US (occurrence: None)
  Receive Date: 20150916
  Receipt Date: 20151026
  Transmission Date: 20160304
  Serious: Yes (Other)
  Sender: FDA-Public Use
  Company Number: 1713747-2015-999314

PATIENT
  Age: 56 Year
  Sex: Male
  Weight: 100 kg

DRUGS (10)
  1. DELFLEX WITH DEXTROSE 2.5% [Suspect]
     Active Substance: CALCIUM CHLORIDE\DEXTROSE MONOHYDRATE\MAGNESIUM CHLORIDE\SODIUM CHLORIDE\SODIUM LACTATE
     Indication: CHRONIC KIDNEY DISEASE
     Route: 033
     Dates: start: 20111116
  2. LANTHANUM [Concomitant]
     Active Substance: LANTHANUM
  3. LIBERTY CYCLER [Concomitant]
     Active Substance: DEVICE
  4. XANAX [Concomitant]
     Active Substance: ALPRAZOLAM
  5. EPOGEN [Concomitant]
     Active Substance: ERYTHROPOIETIN
  6. RENAL CAPS [Concomitant]
  7. LIBERTY CYCLER CASSETTE [Concomitant]
     Active Substance: DEVICE
  8. LANTUS SOLOSTAR [Concomitant]
     Active Substance: INSULIN GLARGINE
  9. HUMALOG [Concomitant]
     Active Substance: INSULIN LISPRO
  10. RENVELA [Concomitant]
     Active Substance: SEVELAMER CARBONATE

REACTIONS (1)
  - Peritonitis [None]

NARRATIVE: CASE EVENT DATE: 20150827
